FAERS Safety Report 7761713-7 (Version None)
Quarter: 2011Q3

REPORT INFORMATION
  Report Type: 
  Country: None (occurrence: None)
  Receive Date: 20110920
  Receipt Date: 20110912
  Transmission Date: 20111222
  Serious: No
  Sender: FDA-Public Use
  Company Number: PHEH2011US03965

PATIENT
  Sex: Female

DRUGS (8)
  1. TASIGNA [Suspect]
     Dosage: 200 MG, BID
     Route: 048
     Dates: start: 20110914
  2. VICODIN [Concomitant]
  3. CALCIUM CARBONATE [Concomitant]
  4. VITAMIN B-12 [Concomitant]
  5. NIFEDIPINE [Concomitant]
  6. FISH OIL [Concomitant]
  7. TASIGNA [Suspect]
     Dosage: 150 MG, BID
     Route: 048
     Dates: end: 20110908
  8. WELLBUTRIN [Concomitant]

REACTIONS (1)
  - HEPATIC ENZYME INCREASED [None]
